FAERS Safety Report 15707195 (Version 4)
Quarter: 2019Q2

REPORT INFORMATION
  Report Type: Spontaneous
  Country: JP (occurrence: JP)
  Receive Date: 20181210
  Receipt Date: 20190628
  Transmission Date: 20190711
  Serious: Yes (Hospitalization, Other)
  Sender: FDA-Public Use
  Company Number: JP-TAKEDA-2018TJP030417

PATIENT
  Age: 79 Year
  Sex: Female
  Weight: 41 kg

DRUGS (11)
  1. MAGNESIUM OXIDE. [Concomitant]
     Active Substance: MAGNESIUM OXIDE
     Indication: CONSTIPATION
     Dosage: 1.5 GRAM
     Route: 048
  2. URSO [Concomitant]
     Active Substance: URSODIOL
     Dosage: 600 MILLIGRAM
     Route: 048
  3. SENNA [Concomitant]
     Active Substance: SENNA LEAF\SENNOSIDES\SENNOSIDES A AND B
     Indication: CONSTIPATION
     Dosage: 0.5 GRAM
     Route: 048
  4. FLUCONAZOLE. [Concomitant]
     Active Substance: FLUCONAZOLE
     Indication: PROPHYLAXIS
     Dosage: 100 MILLIGRAM
     Route: 048
  5. NINLARO [Suspect]
     Active Substance: IXAZOMIB CITRATE
     Indication: PLASMA CELL MYELOMA
     Dosage: 4 MILLIGRAM, 1/WEEK
     Route: 048
     Dates: start: 20181123, end: 20181130
  6. NEXIUM [Concomitant]
     Active Substance: ESOMEPRAZOLE MAGNESIUM
     Indication: GASTROINTESTINAL DISORDER
     Dosage: 20 MILLIGRAM
     Route: 048
  7. LIXIANA [Concomitant]
     Active Substance: EDOXABAN TOSYLATE
     Dosage: 60 MILLIGRAM
     Route: 048
  8. DECADRON [Concomitant]
     Active Substance: DEXAMETHASONE
     Indication: PLASMA CELL MYELOMA
     Dosage: 20 MILLIGRAM, 2/WEEK
     Route: 048
     Dates: start: 20181123, end: 20181124
  9. AMLODIPINE                         /00972402/ [Concomitant]
     Active Substance: AMLODIPINE BESYLATE
     Dosage: 5 MILLIGRAM
     Route: 048
  10. DECADRON [Concomitant]
     Active Substance: DEXAMETHASONE
     Dosage: 20 MILLIGRAM, 2/WEEK
     Route: 048
     Dates: start: 20181130, end: 20181201
  11. GENINAX [Concomitant]
     Active Substance: GARENOXACIN MESYLATE
     Indication: PROPHYLAXIS
     Dosage: 400 MILLIGRAM
     Route: 048

REACTIONS (1)
  - Interstitial lung disease [Recovered/Resolved]

NARRATIVE: CASE EVENT DATE: 20181203
